FAERS Safety Report 4981515-4 (Version None)
Quarter: 2006Q2

REPORT INFORMATION
  Report Type: 
  Country: None (occurrence: None)
  Receive Date: 20060419
  Receipt Date: 20060410
  Transmission Date: 20061013
  Serious: Yes (Other)
  Sender: FDA-Public Use
  Company Number: 2006049191

PATIENT
  Sex: Female

DRUGS (1)
  1. MECLIZINE [Suspect]
     Indication: INTENTIONAL OVERDOSE
     Dosage: 26 PILLS ONCE,  ORAL
     Route: 048
     Dates: start: 20060410, end: 20060410

REACTIONS (2)
  - HALLUCINATION, AUDITORY [None]
  - INTENTIONAL OVERDOSE [None]
